FAERS Safety Report 9247568 (Version 1)
Quarter: 2013Q2

REPORT INFORMATION
  Report Type: Spontaneous
  Country: US (occurrence: None)
  Receive Date: 20130419
  Receipt Date: 20130419
  Transmission Date: 20140414
  Serious: No
  Sender: FDA-Public Use
  Company Number: None

PATIENT
  Age: 44 Year
  Sex: Female
  Weight: 81 kg

DRUGS (9)
  1. SUMATRIPTAN [Suspect]
     Indication: HEADACHE
     Dosage: PRN
     Dates: start: 20130331, end: 20130402
  2. OXYCODONE [Concomitant]
  3. TOPIRAMATE [Concomitant]
  4. PROMETHAZINE [Concomitant]
  5. BUPROPION [Concomitant]
  6. ZOLPIDEM [Concomitant]
  7. FENTANYL [Concomitant]
  8. CARISOPRODOL [Concomitant]
  9. LORAZEPAM [Concomitant]

REACTIONS (6)
  - Incorrect route of drug administration [None]
  - Paraesthesia [None]
  - Hypoaesthesia [None]
  - Hypoaesthesia [None]
  - Heart rate increased [None]
  - Medication error [None]
